FAERS Safety Report 4928297-X (Version None)
Quarter: 2006Q1

REPORT INFORMATION
  Report Type: 
  Country: None (occurrence: None)
  Receive Date: 20060228
  Receipt Date: 20050921
  Transmission Date: 20060701
  Serious: Yes (Disabling, Other)
  Sender: FDA-Public Use
  Company Number: US-MERCK-0509USA03128

PATIENT
  Age: 34 Year
  Sex: Male
  Weight: 99 kg

DRUGS (8)
  1. VIOXX [Suspect]
     Indication: CARPAL TUNNEL SYNDROME
     Route: 048
     Dates: start: 20010108, end: 20010204
  2. VIOXX [Suspect]
     Route: 048
     Dates: start: 20010108, end: 20010204
  3. VIOXX [Suspect]
     Route: 048
     Dates: start: 20010830
  4. VIOXX [Suspect]
     Route: 048
     Dates: start: 20030807
  5. VIOXX [Suspect]
     Indication: NEUROPATHY PERIPHERAL
     Route: 048
     Dates: start: 20010108, end: 20010204
  6. VIOXX [Suspect]
     Route: 048
     Dates: start: 20010108, end: 20010204
  7. VIOXX [Suspect]
     Route: 048
     Dates: start: 20010830
  8. VIOXX [Suspect]
     Route: 048
     Dates: start: 20030807

REACTIONS (8)
  - CEREBROVASCULAR ACCIDENT [None]
  - CHEST PAIN [None]
  - CONTUSION [None]
  - DILATATION ATRIAL [None]
  - HEAD INJURY [None]
  - HEADACHE [None]
  - INTERVERTEBRAL DISC DEGENERATION [None]
  - PAIN IN EXTREMITY [None]
